FAERS Safety Report 18300436 (Version 1)
Quarter: 2020Q3

REPORT INFORMATION
  Report Type: Report from Study
  Country: None (occurrence: US)
  Receive Date: 20200923
  Receipt Date: 20200923
  Transmission Date: 20201103
  Serious: Yes (Hospitalization)
  Sender: FDA-Public Use
  Company Number: US-ABBVIE-19K-163-2762819-00

PATIENT
  Age: 70 Year
  Sex: Female
  Weight: 82.63 kg

DRUGS (2)
  1. METHOTREXATE. [Concomitant]
     Active Substance: METHOTREXATE
     Indication: RHEUMATOID ARTHRITIS
  2. HUMIRA [Suspect]
     Active Substance: ADALIMUMAB
     Indication: RHEUMATOID ARTHRITIS
     Route: 058
     Dates: start: 20181118, end: 2020

REACTIONS (7)
  - Weight decreased [Recovered/Resolved]
  - Colitis [Recovered/Resolved]
  - Hypophagia [Recovered/Resolved]
  - Gastrointestinal infection [Recovered/Resolved]
  - Blood potassium decreased [Recovered/Resolved]
  - Drug ineffective [Not Recovered/Not Resolved]
  - Viral infection [Recovered/Resolved]

NARRATIVE: CASE EVENT DATE: 201904
